FAERS Safety Report 20130648 (Version 2)
Quarter: 2022Q1

REPORT INFORMATION
  Report Type: Spontaneous
  Country: US (occurrence: US)
  Receive Date: 20211130
  Receipt Date: 20220111
  Transmission Date: 20220423
  Serious: Yes (Other)
  Sender: FDA-Public Use
  Company Number: US-PFIZER INC-202101596190

PATIENT
  Age: 62 Year
  Sex: Female
  Weight: 59 kg

DRUGS (2)
  1. DOCETAXEL [Suspect]
     Active Substance: DOCETAXEL
     Indication: Lung neoplasm malignant
     Dosage: 110 MG, CYCLIC (EVERY 3 WEEKS)
     Route: 042
     Dates: start: 20210929
  2. CYRAMZA [Concomitant]
     Active Substance: RAMUCIRUMAB
     Indication: Lung neoplasm malignant
     Dosage: 500 MG, CYCLIC (EVERY 3 WEEKS)
     Route: 042
     Dates: start: 20210929

REACTIONS (5)
  - Erythema [Recovered/Resolved]
  - Vein discolouration [Recovered/Resolved]
  - Pruritus [Recovered/Resolved]
  - Dermatitis [Unknown]
  - Peripheral venous disease [Unknown]

NARRATIVE: CASE EVENT DATE: 20211104
